FAERS Safety Report 15191239 (Version 1)
Quarter: 2018Q3

REPORT INFORMATION
  Report Type: Spontaneous
  Country: US (occurrence: US)
  Receive Date: 20180724
  Receipt Date: 20180724
  Transmission Date: 20181010
  Serious: Yes (Hospitalization, Other)
  Sender: FDA-Public Use
  Company Number: US-AMGEN-USASP2018045150

PATIENT
  Age: 68 Year
  Sex: Male
  Weight: 123 kg

DRUGS (16)
  1. CELEXA [Concomitant]
     Active Substance: CITALOPRAM HYDROBROMIDE
     Dosage: 20 MG, QD
  2. LASIX [Concomitant]
     Active Substance: FUROSEMIDE
     Dosage: 60 MG, QD
  3. ACYCLOVIR. [Concomitant]
     Active Substance: ACYCLOVIR
     Dosage: 400 MG, BID
  4. KYPROLIS [Suspect]
     Active Substance: CARFILZOMIB
     Indication: PLASMA CELL MYELOMA
     Dosage: 20 MG/M2, UNK
     Route: 065
     Dates: start: 20180326
  5. KYPROLIS [Suspect]
     Active Substance: CARFILZOMIB
     Dosage: 20 MG/M2, UNK
     Route: 065
     Dates: start: 20180327
  6. ALLOPURINOL. [Concomitant]
     Active Substance: ALLOPURINOL
     Dosage: 2 DF, QD
  7. CALCIUM WITH VITAMIN D [Concomitant]
     Active Substance: CALCIUM\VITAMIN D
     Dosage: 1 DF, QD
  8. INSULIN [Concomitant]
     Active Substance: INSULIN NOS
     Dosage: UNK
  9. VITAMIN B12 [Concomitant]
     Active Substance: CYANOCOBALAMIN
     Dosage: UNK UNK, QD
     Route: 048
  10. NORCO [Concomitant]
     Active Substance: ACETAMINOPHEN\HYDROCODONE BITARTRATE
     Dosage: 5/325 EVERY 8 HOURS AS NEEDED
  11. BUPROPION. [Concomitant]
     Active Substance: BUPROPION
     Dosage: 150 MG, BID
  12. LENALIDOMIDE [Concomitant]
     Active Substance: LENALIDOMIDE
     Indication: PLASMA CELL MYELOMA
     Dosage: 10 MG, DAILY FOR 21 DAYS AND OFF FOR 7 DAYS
     Dates: start: 20180326
  13. DEXAMETHASONE. [Concomitant]
     Active Substance: DEXAMETHASONE
     Indication: PLASMA CELL MYELOMA
     Dosage: 40 MG, ON DAYS 1, 8, 15, AND 22
     Dates: start: 20180326
  14. VITAMIN D3 [Concomitant]
     Active Substance: CHOLECALCIFEROL
     Dosage: UNK UNK, 4 TIMES/WK
  15. METOPROLOL. [Concomitant]
     Active Substance: METOPROLOL
     Dosage: 25 MG, QD
  16. SINGULAIR [Concomitant]
     Active Substance: MONTELUKAST SODIUM
     Dosage: 10 MG, QD (BEDTIME )

REACTIONS (2)
  - Thrombocytopenia [Not Recovered/Not Resolved]
  - Acute myocardial infarction [Not Recovered/Not Resolved]

NARRATIVE: CASE EVENT DATE: 2018
